FAERS Safety Report 20980392 (Version 1)
Quarter: 2022Q2

REPORT INFORMATION
  Report Type: Spontaneous
  Country: US (occurrence: US)
  Receive Date: 20220620
  Receipt Date: 20220620
  Transmission Date: 20220721
  Serious: No
  Sender: FDA-Public Use
  Company Number: US-MICRO LABS LIMITED-ML2022-02231

PATIENT
  Age: 85 Year
  Sex: Female

DRUGS (1)
  1. DORZOLAMIDE\TIMOLOL [Suspect]
     Active Substance: DORZOLAMIDE\TIMOLOL
     Indication: Ocular hypertension
     Dosage: 1 DROP IN EACH EYE, 22.3 MG/ 6.8 MG PER ML

REACTIONS (4)
  - Product dose omission issue [Unknown]
  - Extra dose administered [Unknown]
  - Product storage error [Unknown]
  - Product packaging quantity issue [Unknown]
